FAERS Safety Report 19075910 (Version 1)
Quarter: 2021Q1

REPORT INFORMATION
  Report Type: Spontaneous
  Country: US (occurrence: US)
  Receive Date: 20210330
  Receipt Date: 20210330
  Transmission Date: 20210420
  Serious: No
  Sender: FDA-Public Use
  Company Number: US-009507513-2103USA007449

PATIENT
  Age: 30 Year
  Sex: Female

DRUGS (8)
  1. MEROPENEM. [Concomitant]
     Active Substance: MEROPENEM
  2. AMPICILLIN [Concomitant]
     Active Substance: AMPICILLIN
  3. MICAFUNGIN. [Concomitant]
     Active Substance: MICAFUNGIN SODIUM
  4. VANCOMYCIN [Concomitant]
     Active Substance: VANCOMYCIN
  5. CUBICIN [Suspect]
     Active Substance: DAPTOMYCIN
     Indication: ENTEROCOCCAL INFECTION
  6. CUBICIN [Suspect]
     Active Substance: DAPTOMYCIN
     Indication: CANDIDA INFECTION
  7. CEFTOLOZANE SULFATE (+) TAZOBACTAM SODIUM [Concomitant]
     Active Substance: CEFTOLOZANE SULFATE\TAZOBACTAM SODIUM
  8. CUBICIN [Suspect]
     Active Substance: DAPTOMYCIN
     Indication: PSEUDOMONAS INFECTION

REACTIONS (1)
  - Product use in unapproved indication [Unknown]
